FAERS Safety Report 7488581-5 (Version None)
Quarter: 2011Q2

REPORT INFORMATION
  Report Type: 
  Country: None (occurrence: None)
  Receive Date: 20110518
  Receipt Date: 20110512
  Transmission Date: 20111010
  Serious: Yes (Hospitalization)
  Sender: FDA-Public Use
  Company Number: PL-TEVA-278883ISR

PATIENT
  Age: 51 Year
  Sex: Male

DRUGS (9)
  1. ISOSORBIDE MONONITRATE [Concomitant]
  2. BISOPROLOL FUMARATE [Concomitant]
  3. INSULIN [Concomitant]
  4. INDAPAMIDE [Concomitant]
  5. ACETYL SALICYLIC ACID USP BAT [Concomitant]
  6. SPIRONOLACTONE [Suspect]
     Dosage: 50 MILLIGRAM;
  7. AMLODIPINE [Concomitant]
  8. SIMVASTATIN [Suspect]
     Dosage: 20 MILLIGRAM;
  9. QUINAPRIL [Suspect]
     Dosage: 40 MILLIGRAM;

REACTIONS (3)
  - RHABDOMYOLYSIS [None]
  - HYPERKALAEMIA [None]
  - ATRIOVENTRICULAR BLOCK COMPLETE [None]
